FAERS Safety Report 9697389 (Version 1)
Quarter: 2013Q4

REPORT INFORMATION
  Report Type: Spontaneous
  Country: US (occurrence: None)
  Receive Date: 20131119
  Receipt Date: 20131119
  Transmission Date: 20140711
  Serious: No
  Sender: FDA-Public Use
  Company Number: None

PATIENT
  Age: 28 Year
  Sex: Female

DRUGS (1)
  1. CELEBREX [Suspect]
     Indication: ARTHRALGIA
     Dates: start: 20131001, end: 20131010

REACTIONS (8)
  - Chromaturia [None]
  - Pruritus [None]
  - Abdominal pain [None]
  - Fatigue [None]
  - Nausea [None]
  - Jaundice [None]
  - Weight decreased [None]
  - Liver function test abnormal [None]
